FAERS Safety Report 24312431 (Version 2)
Quarter: 2024Q3

REPORT INFORMATION
  Report Type: Other
  Country: US (occurrence: US)
  Receive Date: 20240912
  Receipt Date: 20240926
  Transmission Date: 20241016
  Serious: No
  Sender: MADRIGAL PHARMACEUTICALS
  Company Number: US-MADRIGAL PHARMACEUTICALS, INC-2024REZ1481

PATIENT

DRUGS (1)
  1. REZDIFFRA [Suspect]
     Active Substance: RESMETIROM
     Indication: Non-alcoholic steatohepatitis
     Dosage: 100 MILLIGRAM, QD
     Route: 048
     Dates: start: 202407, end: 2024

REACTIONS (13)
  - Hepatic enzyme increased [Unknown]
  - Vomiting projectile [Unknown]
  - Asthenia [Unknown]
  - Dyspepsia [Unknown]
  - Fatigue [Unknown]
  - Weight decreased [Unknown]
  - Head discomfort [Unknown]
  - Hyperhidrosis [Unknown]
  - Headache [Unknown]
  - Nausea [Unknown]
  - Dizziness [Unknown]
  - Abdominal pain upper [Unknown]
  - Retching [Unknown]

NARRATIVE: CASE EVENT DATE: 20240101
